FAERS Safety Report 12856894 (Version 1)
Quarter: 2016Q4

REPORT INFORMATION
  Report Type: Spontaneous
  Country: US (occurrence: US)
  Receive Date: 20161018
  Receipt Date: 20161018
  Transmission Date: 20170207
  Serious: Yes (Other)
  Sender: FDA-Public Use
  Company Number: None

PATIENT
  Age: 48 Year
  Sex: Female
  Weight: 72.64 kg

DRUGS (4)
  1. HYDROXYCHLOROQUINE [Concomitant]
     Active Substance: HYDROXYCHLOROQUINE
  2. LYRICA [Suspect]
     Active Substance: PREGABALIN
     Indication: NEUROPATHY PERIPHERAL
     Route: 048
     Dates: start: 20150529, end: 20150604
  3. MELOXICAM. [Concomitant]
     Active Substance: MELOXICAM
  4. LYRICA [Suspect]
     Active Substance: PREGABALIN
     Indication: PLANTAR FASCIITIS
     Route: 048
     Dates: start: 20150529, end: 20150604

REACTIONS (3)
  - Systemic lupus erythematosus [None]
  - Immune thrombocytopenic purpura [None]
  - Sjogren^s syndrome [None]

NARRATIVE: CASE EVENT DATE: 20160715
